FAERS Safety Report 21240424 (Version 1)
Quarter: 2022Q3

REPORT INFORMATION
  Report Type: Spontaneous
  Country: AU (occurrence: AU)
  Receive Date: 20220822
  Receipt Date: 20220822
  Transmission Date: 20221026
  Serious: Yes (Other)
  Sender: FDA-Public Use
  Company Number: AU-BRISTOL-MYERS SQUIBB COMPANY-2022-091941

PATIENT
  Age: 65 Year
  Sex: Male
  Weight: 90 kg

DRUGS (6)
  1. NIVOLUMAB [Suspect]
     Active Substance: NIVOLUMAB
     Indication: Malignant melanoma stage III
     Dosage: DOSE : UNAVAILABLE;     FREQ : UNAVAILABLE
     Route: 065
     Dates: start: 201901
  2. IPILIMUMAB [Suspect]
     Active Substance: IPILIMUMAB
     Indication: Malignant melanoma stage III
     Route: 065
  3. ENCORAFENIB [Concomitant]
     Active Substance: ENCORAFENIB
     Indication: Malignant melanoma stage III
     Route: 065
     Dates: start: 202105
  4. BINIMETINIB [Concomitant]
     Active Substance: BINIMETINIB
     Indication: Malignant melanoma stage III
     Route: 065
     Dates: start: 202105
  5. DABRAFENIB [Concomitant]
     Active Substance: DABRAFENIB
     Indication: Malignant melanoma stage III
     Route: 065
     Dates: start: 201903
  6. TRAMETINIB [Concomitant]
     Active Substance: TRAMETINIB
     Indication: Malignant melanoma stage III
     Route: 065
     Dates: start: 201903

REACTIONS (5)
  - Drug ineffective [Unknown]
  - Swelling [Recovering/Resolving]
  - Facial paralysis [Not Recovered/Not Resolved]
  - Melanoma recurrent [Unknown]
  - Colitis [Unknown]

NARRATIVE: CASE EVENT DATE: 20220601
